FAERS Safety Report 4450670-7 (Version None)
Quarter: 2004Q3

REPORT INFORMATION
  Report Type: 
  Country: None (occurrence: None)
  Receive Date: 20040914
  Receipt Date: 20040914
  Transmission Date: 20050211
  Serious: Yes (Other)
  Sender: FDA-Public Use
  Company Number: None

PATIENT
  Age: 41 Year
  Sex: Female
  Weight: 68.0396 kg

DRUGS (1)
  1. LEXAPRO [Suspect]
     Indication: ANXIETY
     Dosage: 1 DAILY ORAL
     Route: 048
     Dates: start: 20040615, end: 20040820

REACTIONS (6)
  - AGITATION [None]
  - ANXIETY [None]
  - INFLUENZA LIKE ILLNESS [None]
  - INSOMNIA [None]
  - PARAESTHESIA [None]
  - SEXUAL DYSFUNCTION [None]
